FAERS Safety Report 24079677 (Version 1)
Quarter: 2024Q3

REPORT INFORMATION
  Report Type: Spontaneous
  Country: CN (occurrence: CN)
  Receive Date: 20240711
  Receipt Date: 20240711
  Transmission Date: 20241016
  Serious: Yes (Other)
  Sender: MERCK
  Company Number: CN-009507513-2407CHN002101

PATIENT
  Age: 81 Year
  Sex: Male
  Weight: 60.1 kg

DRUGS (2)
  1. INVANZ [Suspect]
     Active Substance: ERTAPENEM SODIUM
     Indication: Infection
     Dosage: 1 GRAM, QD
     Route: 041
     Dates: start: 20240604, end: 20240609
  2. SODIUM CHLORIDE [Suspect]
     Active Substance: SODIUM CHLORIDE
     Indication: Medication dilution
     Dosage: 100 MILLILITER, QD
     Route: 041
     Dates: start: 20240604, end: 20240609

REACTIONS (4)
  - Toxic encephalopathy [Unknown]
  - Abnormal behaviour [Recovered/Resolved]
  - Product use issue [Unknown]
  - Product preparation issue [Unknown]

NARRATIVE: CASE EVENT DATE: 20240604
